FAERS Safety Report 7038896-X (Version None)
Quarter: 2010Q4

REPORT INFORMATION
  Report Type: 
  Country: None (occurrence: None)
  Receive Date: 20101012
  Receipt Date: 20101004
  Transmission Date: 20110411
  Serious: Yes (Disabling)
  Sender: FDA-Public Use
  Company Number: CA-BAYER-201033088NA

PATIENT
  Age: 26 Year
  Sex: Female

DRUGS (2)
  1. MIRENA [Suspect]
     Indication: PRODUCT USED FOR UNKNOWN INDICATION
     Dosage: FREQUENCY: CONTINUOUS
     Route: 015
     Dates: start: 20100430, end: 20100602
  2. METRONIDAZOLE [Concomitant]
     Indication: MUSCLE SPASMS

REACTIONS (2)
  - MUSCLE SPASMS [None]
  - PELVIC PAIN [None]
